FAERS Safety Report 7355753 (Version 3)
Quarter: 2020Q3

REPORT INFORMATION
  Report Type: Report from Study
  Country: PL (occurrence: PL)
  Receive Date: 20100415
  Receipt Date: 20100610
  Transmission Date: 20201104
  Serious: Yes (Hospitalization)
  Sender: FDA-Public Use
  Company Number: PL-WYE-H14561910

PATIENT
  Age: 64 Year
  Sex: Female
  Weight: 54.4 kg

DRUGS (3)
  1. GLICLAZIDE [Suspect]
     Active Substance: GLICLAZIDE
     Indication: DIABETES MELLITUS
     Dosage: UNKNOWN
     Route: 065
     Dates: start: 20100324
  2. BOSUTINIB [Suspect]
     Active Substance: BOSUTINIB
     Indication: BREAST CANCER METASTATIC
     Route: 048
     Dates: start: 20100326, end: 20100409
  3. LETROZOLE. [Suspect]
     Active Substance: LETROZOLE
     Indication: BREAST CANCER METASTATIC
     Route: 048
     Dates: start: 20100326, end: 20100409

REACTIONS (2)
  - Aspartate aminotransferase increased [Recovered/Resolved]
  - Alanine aminotransferase increased [Recovered/Resolved]

NARRATIVE: CASE EVENT DATE: 20100409
